FAERS Safety Report 13024926 (Version 2)
Quarter: 2017Q3

REPORT INFORMATION
  Report Type: Spontaneous
  Country: IT (occurrence: IT)
  Receive Date: 20161213
  Receipt Date: 20170914
  Transmission Date: 20171127
  Serious: Yes (Other)
  Sender: FDA-Public Use
  Company Number: IT-ASTRAZENECA-2016SF29569

PATIENT
  Age: 28 Year
  Sex: Female

DRUGS (10)
  1. MEROPENEM. [Suspect]
     Active Substance: MEROPENEM
     Route: 042
  2. ANIDULAFUNGIN [Suspect]
     Active Substance: ANIDULAFUNGIN
     Route: 065
  3. CIPROFLOXACIN. [Suspect]
     Active Substance: CIPROFLOXACIN
     Route: 065
  4. PIPERACILLIN SODIUM [Suspect]
     Active Substance: PIPERACILLIN SODIUM
     Route: 065
  5. MEZLOCILLIN [Suspect]
     Active Substance: MEZLOCILLIN
     Route: 065
  6. ERTAPENEM [Suspect]
     Active Substance: ERTAPENEM
     Route: 065
  7. AMPICILLIN [Suspect]
     Active Substance: AMPICILLIN
     Route: 065
  8. TEICOPLANIN [Suspect]
     Active Substance: TEICOPLANIN
     Route: 065
  9. VANCOMYCIN [Suspect]
     Active Substance: VANCOMYCIN
     Route: 065
  10. IMIPENEM /CILASTATIN [Suspect]
     Active Substance: CILASTATIN SODIUM\IMIPENEM
     Route: 065

REACTIONS (3)
  - Type IV hypersensitivity reaction [Unknown]
  - Dermatitis contact [Recovered/Resolved]
  - Occupational exposure to product [Recovered/Resolved]
